FAERS Safety Report 21842061 (Version 1)
Quarter: 2023Q1

REPORT INFORMATION
  Report Type: Report from Study
  Country: US (occurrence: US)
  Receive Date: 20230110
  Receipt Date: 20230110
  Transmission Date: 20230418
  Serious: Yes (Other)
  Sender: FDA-Public Use
  Company Number: US-Accord-293205

PATIENT
  Age: 84 Year
  Sex: Male

DRUGS (4)
  1. LEVETIRACETAM [Suspect]
     Active Substance: LEVETIRACETAM
     Indication: Carotid artery occlusion
     Dosage: 500 MILLIGRAM, BID
     Route: 065
  2. RELUGOLIX [Suspect]
     Active Substance: RELUGOLIX
     Indication: Prostate cancer
     Dosage: STRENGTH: 120 MG ?360 MILLIGRAM, ONE TIME DOSE
     Route: 048
     Dates: start: 202106, end: 202106
  3. APALUTAMIDE [Concomitant]
     Active Substance: APALUTAMIDE
  4. RELUGOLIX [Suspect]
     Active Substance: RELUGOLIX
     Indication: Prostate cancer
     Dosage: STRENGTH: 120 MG?120 MILLIGRAM, QD
     Route: 048

REACTIONS (9)
  - Carotid artery occlusion [Unknown]
  - Cerebrovascular accident [Unknown]
  - Mood altered [Unknown]
  - Hair growth abnormal [Unknown]
  - Hot flush [Unknown]
  - Decreased appetite [Unknown]
  - Weight decreased [Unknown]
  - Incorrect dosage administered [Unknown]
  - Fatigue [Unknown]

NARRATIVE: CASE EVENT DATE: 20221028
